FAERS Safety Report 8133629-8 (Version None)
Quarter: 2012Q1

REPORT INFORMATION
  Report Type: 
  Country: None (occurrence: None)
  Receive Date: 20120213
  Receipt Date: 20120206
  Transmission Date: 20120608
  Serious: Yes (Hospitalization)
  Sender: FDA-Public Use
  Company Number: JP-ROCHE-1037838

PATIENT
  Age: 70 Year
  Sex: Female
  Weight: 48 kg

DRUGS (16)
  1. VINCRISTINE [Suspect]
     Indication: NON-HODGKIN'S LYMPHOMA
     Route: 042
     Dates: start: 20111019, end: 20111117
  2. PURSENNID [Concomitant]
     Indication: CONSTIPATION
     Dates: start: 20111012
  3. LIVOSTIN EYE DROPS [Concomitant]
     Indication: CONJUNCTIVITIS
  4. INOTUZUMAB OZOGAMICIN [Suspect]
     Indication: NON-HODGKIN'S LYMPHOMA
     Route: 042
     Dates: start: 20111020, end: 20111118
  5. DOXORUBICIN HCL [Suspect]
     Indication: CANCER PAIN
     Route: 048
     Dates: start: 20111012
  6. SELBEX [Concomitant]
     Dates: start: 20100813
  7. HYALURONATE SODIUM [Concomitant]
     Indication: CONJUNCTIVITIS
  8. CYCLOPHOSPHAMIDE [Suspect]
     Indication: NON-HODGKIN'S LYMPHOMA
     Route: 042
     Dates: start: 20111019, end: 20111117
  9. PREDNISONE TAB [Suspect]
     Indication: NON-HODGKIN'S LYMPHOMA
     Route: 048
     Dates: start: 20111019, end: 20111121
  10. PANTOSIN [Concomitant]
     Indication: CONSTIPATION
     Dates: start: 20100813
  11. LANSOPRAZOLE [Concomitant]
     Indication: GASTRITIS
     Dates: start: 20100829
  12. RHUBARB [Concomitant]
     Indication: CONSTIPATION
     Dates: start: 20111012
  13. MABTHERA [Suspect]
     Indication: NON-HODGKIN'S LYMPHOMA
     Route: 042
     Dates: start: 20111019, end: 20111117
  14. LENDORMIN [Concomitant]
     Indication: INSOMNIA
     Dates: start: 20100822
  15. POSTERISAN FORTE [Concomitant]
     Indication: HAEMORRHOIDS
     Dates: start: 20111115
  16. MAGMITT [Concomitant]
     Indication: CONSTIPATION
     Dates: start: 20100813

REACTIONS (1)
  - UPPER GASTROINTESTINAL HAEMORRHAGE [None]
